FAERS Safety Report 7423680-5 (Version None)
Quarter: 2011Q2

REPORT INFORMATION
  Report Type: 
  Country: None (occurrence: None)
  Receive Date: 20110419
  Receipt Date: 20110411
  Transmission Date: 20111010
  Serious: Yes (Other)
  Sender: FDA-Public Use
  Company Number: US-JNJFOC-20110405041

PATIENT
  Sex: Female

DRUGS (2)
  1. NUCYNTA [Suspect]
     Indication: PRODUCT USED FOR UNKNOWN INDICATION
     Route: 048
  2. PROZAC [Concomitant]
     Route: 065

REACTIONS (2)
  - SEROTONIN SYNDROME [None]
  - ANXIETY [None]
